FAERS Safety Report 4562692-6 (Version None)
Quarter: 2005Q1

REPORT INFORMATION
  Report Type: 
  Country: None (occurrence: None)
  Receive Date: 20050124
  Receipt Date: 20050111
  Transmission Date: 20050727
  Serious: Yes (Other)
  Sender: FDA-Public Use
  Company Number: 2005011764

PATIENT
  Age: 61 Year
  Sex: Female

DRUGS (6)
  1. ATORVASTATIN (ATORVASTATIN) [Suspect]
     Indication: BLOOD CHOLESTEROL INCREASED
     Dosage: (40 MG,), ORAL
     Route: 048
     Dates: start: 20040601, end: 20041203
  2. BONJELA (CETALKONIUM CHLORIDE, CHOLINE SALICYLATE, ETHANOL, GLYCEROL, [Suspect]
     Indication: TONGUE ULCERATION
     Dosage: (PRN), TOPICAL
     Route: 061
     Dates: start: 20041201, end: 20041203
  3. KALMS (ASAFETIDA, GENTIAN, LUPULUS, VALERIAN EXTRACT) [Suspect]
     Indication: ANXIETY
     Dosage: (PRN), ORAL
     Route: 048
     Dates: start: 20041101, end: 20041203
  4. PERINDOPRIL (PERINDOPRIL) [Concomitant]
  5. COD LIVER OIL/TOCOPHERYL ACETATE (COD-LIVER OIL, TOCOPHERYL ACETATE) [Concomitant]
  6. ANGELICA (ANGELICA) [Concomitant]

REACTIONS (3)
  - ANXIETY [None]
  - TONGUE OEDEMA [None]
  - TONGUE ULCERATION [None]
